FAERS Safety Report 21298911 (Version 1)
Quarter: 2022Q3

REPORT INFORMATION
  Report Type: Spontaneous
  Country: FI (occurrence: FI)
  Receive Date: 20220906
  Receipt Date: 20220906
  Transmission Date: 20221027
  Serious: Yes (Hospitalization, Other)
  Sender: FDA-Public Use
  Company Number: FI-009507513-2209FIN001404

PATIENT
  Sex: Female

DRUGS (1)
  1. KEYTRUDA [Suspect]
     Active Substance: PEMBROLIZUMAB
     Indication: Cervix carcinoma
     Dosage: 25 MG/ML

REACTIONS (4)
  - Malignant neoplasm progression [Unknown]
  - Hepatic enzyme abnormal [Unknown]
  - Off label use [Unknown]
  - Drug ineffective for unapproved indication [Unknown]
